FAERS Safety Report 18428485 (Version 1)
Quarter: 2020Q4

REPORT INFORMATION
  Report Type: Spontaneous
  Country: ES (occurrence: ES)
  Receive Date: 20201026
  Receipt Date: 20201026
  Transmission Date: 20210114
  Serious: Yes (Death, Other)
  Sender: FDA-Public Use
  Company Number: ES-ABBVIE-20K-144-3624125-00

PATIENT

DRUGS (3)
  1. IMBRUVICA [Suspect]
     Active Substance: IBRUTINIB
     Indication: CHRONIC LYMPHOCYTIC LEUKAEMIA
     Route: 048
  2. IMBRUVICA [Suspect]
     Active Substance: IBRUTINIB
     Indication: WALDENSTROM^S MACROGLOBULINAEMIA
  3. IMBRUVICA [Suspect]
     Active Substance: IBRUTINIB
     Indication: MANTLE CELL LYMPHOMA

REACTIONS (11)
  - Sepsis [Unknown]
  - Hepatic failure [Unknown]
  - Diarrhoea [Unknown]
  - Herpes zoster [Unknown]
  - Asthenia [Unknown]
  - Rectal haemorrhage [Unknown]
  - Atrial fibrillation [Unknown]
  - Febrile neutropenia [Fatal]
  - Jaundice [Unknown]
  - Hypertension [Unknown]
  - Pneumonia [Unknown]
